FAERS Safety Report 4429552-2 (Version None)
Quarter: 2004Q3

REPORT INFORMATION
  Report Type: 
  Country: None (occurrence: None)
  Receive Date: 20040819
  Receipt Date: 20040729
  Transmission Date: 20050211
  Serious: Yes (Hospitalization)
  Sender: FDA-Public Use
  Company Number: JP-GLAXOSMITHKLINE-B0341338A

PATIENT
  Age: 33 Year
  Sex: Male
  Weight: 50 kg

DRUGS (6)
  1. ZOVIRAX [Suspect]
     Indication: VARICELLA
     Dosage: 250MG SEE DOSAGE TEXT
     Route: 042
     Dates: start: 20040708, end: 20040713
  2. VALTREX [Suspect]
     Indication: VARICELLA
     Dosage: 1000MG SEE DOSAGE TEXT
     Route: 048
     Dates: start: 20040713, end: 20040714
  3. SOLETON [Concomitant]
     Indication: PAIN
     Dosage: 1TAB THREE TIMES PER DAY
     Route: 048
     Dates: start: 20040708
  4. HOMOCLOMIN [Concomitant]
     Dosage: 3TAB PER DAY
     Route: 048
     Dates: start: 20040708
  5. ISALON [Concomitant]
     Route: 048
  6. MARZULENE [Concomitant]
     Indication: GASTRITIS
     Dosage: 1.5G PER DAY
     Route: 048
     Dates: start: 20040708

REACTIONS (4)
  - ALANINE AMINOTRANSFERASE INCREASED [None]
  - ASPARTATE AMINOTRANSFERASE INCREASED [None]
  - ENTERITIS [None]
  - HEPATIC FUNCTION ABNORMAL [None]
